FAERS Safety Report 9889840 (Version 2)
Quarter: 2014Q1

REPORT INFORMATION
  Report Type: Spontaneous
  Country: AE (occurrence: AE)
  Receive Date: 20140212
  Receipt Date: 20140224
  Transmission Date: 20141002
  Serious: Yes (Other)
  Sender: FDA-Public Use
  Company Number: AE-AMGEN-ARESP2014009743

PATIENT
  Age: 72 Year
  Sex: 0

DRUGS (4)
  1. ENBREL [Suspect]
     Indication: RHEUMATOID ARTHRITIS
     Dosage: 50 MG, QWK
     Route: 058
     Dates: start: 201210, end: 20140205
  2. FOLIC ACID [Concomitant]
     Dosage: 5 MG 1 TAB TWICE PER WEEK
     Dates: end: 20140209
  3. CALCIUM CARBONATE [Concomitant]
     Dosage: 600MG 1 TABLET TWICE PER DAY
     Dates: end: 20140209
  4. ERGOCALCIFEROL [Concomitant]
     Dosage: 1 MICROGRAM DAILY
     Dates: end: 20140209

REACTIONS (1)
  - Renal impairment [Recovering/Resolving]
